FAERS Safety Report 10241687 (Version 6)
Quarter: 2014Q4

REPORT INFORMATION
  Report Type: Report from Study
  Country: US (occurrence: US)
  Receive Date: 20140617
  Receipt Date: 20141212
  Transmission Date: 20150528
  Serious: Yes (Death, Hospitalization)
  Sender: FDA-Public Use
  Company Number: US-SA-2014SA077531

PATIENT
  Age: 69 Year
  Sex: Female

DRUGS (2)
  1. ANTIDEPRESSANTS [Concomitant]
     Active Substance: UNSPECIFIED INGREDIENT
  2. AUBAGIO [Suspect]
     Active Substance: TERIFLUNOMIDE
     Indication: MULTIPLE SCLEROSIS
     Route: 048
     Dates: start: 20140520

REACTIONS (20)
  - Tremor [Recovering/Resolving]
  - Pain [Recovering/Resolving]
  - Anxiety [Unknown]
  - Sensory disturbance [Unknown]
  - Chest pain [Unknown]
  - Feeling hot [Recovering/Resolving]
  - Fear [Recovering/Resolving]
  - Burning sensation [Recovered/Resolved]
  - Feeling abnormal [Unknown]
  - Alopecia [Recovered/Resolved]
  - Nervousness [Unknown]
  - Trigeminal neuralgia [Unknown]
  - Rash [Recovering/Resolving]
  - Diarrhoea [Recovered/Resolved]
  - Fall [Fatal]
  - Hypoaesthesia [Recovering/Resolving]
  - Paraesthesia [Recovering/Resolving]
  - Cerebral haemorrhage [Fatal]
  - Rash macular [Recovering/Resolving]
  - Agitation [Unknown]

NARRATIVE: CASE EVENT DATE: 2014
